FAERS Safety Report 7304073-8 (Version None)
Quarter: 2011Q1

REPORT INFORMATION
  Report Type: 
  Country: None (occurrence: None)
  Receive Date: 20110221
  Receipt Date: 20110210
  Transmission Date: 20110831
  Serious: Yes (Other)
  Sender: FDA-Public Use
  Company Number: PHHY2011US11126

PATIENT
  Sex: Female

DRUGS (2)
  1. EXJADE [Suspect]
     Dosage: 1500 MG DAILY
     Route: 048
  2. EXJADE [Suspect]
     Dosage: 1000 MG DAILY
     Route: 048

REACTIONS (2)
  - RENAL DISORDER [None]
  - PROTEINURIA [None]
